FAERS Safety Report 12467643 (Version 1)
Quarter: 2016Q2

REPORT INFORMATION
  Report Type: Report from Study
  Country: NL (occurrence: NL)
  Receive Date: 20160615
  Receipt Date: 20160615
  Transmission Date: 20160815
  Serious: Yes (Death, Other)
  Sender: FDA-Public Use
  Company Number: NL-AMGEN-NLDSL2016076732

PATIENT
  Age: 75 Year
  Sex: Male

DRUGS (3)
  1. XGEVA [Suspect]
     Active Substance: DENOSUMAB
     Indication: PRODUCT USED FOR UNKNOWN INDICATION
     Dosage: 120 MG, Q4WK
     Route: 058
     Dates: start: 20151204
  2. DOCETAXEL. [Concomitant]
     Active Substance: DOCETAXEL
  3. PREDNISONE. [Concomitant]
     Active Substance: PREDNISONE

REACTIONS (9)
  - Upper respiratory tract infection [Unknown]
  - Neutropenia [Unknown]
  - Death [Fatal]
  - Palliative care [Unknown]
  - Atrial flutter [Unknown]
  - Vitamin D deficiency [Unknown]
  - Infection [Unknown]
  - Hypocalcaemia [Unknown]
  - Hyperthyroidism [Unknown]

NARRATIVE: CASE EVENT DATE: 20160505
